FAERS Safety Report 4345185-0 (Version None)
Quarter: 2004Q2

REPORT INFORMATION
  Report Type: 
  Country: None (occurrence: None)
  Receive Date: 20040421
  Receipt Date: 20040421
  Transmission Date: 20050107
  Serious: Yes (Hospitalization)
  Sender: FDA-Public Use
  Company Number: None

PATIENT
  Sex: Male
  Weight: 57.1 kg

DRUGS (7)
  1. TWICE -A-DAY 12 HOUR NASAL SPRAY MFGD.BY PROPHARMA INC [Suspect]
     Indication: NASAL DECONGESTION THERAPY
     Dosage: ONE DOSE
     Dates: start: 20031229
  2. BUPIVACAINE [Suspect]
  3. CEFTRIAXONE [Suspect]
  4. FENTANYL [Suspect]
  5. EMLA [Suspect]
  6. THIOPENTAL SODIUM [Concomitant]
  7. . [Concomitant]

REACTIONS (1)
  - BACTERIAL INFECTION [None]
